FAERS Safety Report 21493134 (Version 1)
Quarter: 2022Q4

REPORT INFORMATION
  Report Type: Spontaneous
  Country: PH (occurrence: None)
  Receive Date: 20221021
  Receipt Date: 20221021
  Transmission Date: 20230113
  Serious: Yes (Death)
  Sender: FDA-Public Use
  Company Number: 2022A351129

PATIENT
  Age: 24049 Day
  Sex: Female

DRUGS (1)
  1. LYNPARZA [Suspect]
     Active Substance: OLAPARIB
     Dosage: 150.0MG UNKNOWN
     Route: 048
     Dates: start: 202205, end: 202207

REACTIONS (2)
  - Multiple organ dysfunction syndrome [Fatal]
  - Ulcer [Unknown]

NARRATIVE: CASE EVENT DATE: 20221003
